FAERS Safety Report 6620719-1 (Version None)
Quarter: 2010Q1

REPORT INFORMATION
  Report Type: 
  Country: None (occurrence: None)
  Receive Date: 20100303
  Receipt Date: 20100216
  Transmission Date: 20100710
  Serious: Yes (Death)
  Sender: FDA-Public Use
  Company Number: 2010020071

PATIENT
  Age: 53 Year
  Sex: Male

DRUGS (6)
  1. CARISOPRODOL [Suspect]
     Dosage: ORAL
     Route: 048
  2. MORPHINE [Suspect]
     Dosage: ORAL
     Route: 048
  3. ACETAMINOPHEN [Suspect]
     Dosage: ORAL
     Route: 048
  4. PHENOBARBITAL TAB [Suspect]
     Dosage: ORAL
     Route: 048
  5. HYDROMORPHONE HCL [Suspect]
     Dosage: ORAL
     Route: 048
  6. DIPHENOXYLATE HCL AND ATROPINE SULFATE [Suspect]
     Dosage: ORAL
     Route: 048

REACTIONS (1)
  - COMPLETED SUICIDE [None]
